FAERS Safety Report 4742503-6 (Version None)
Quarter: 2005Q3

REPORT INFORMATION
  Report Type: 
  Country: None (occurrence: None)
  Receive Date: 20050808
  Receipt Date: 20050725
  Transmission Date: 20060218
  Serious: Yes (Death, Hospitalization, Other)
  Sender: FDA-Public Use
  Company Number: US-2005-014741

PATIENT
  Age: 63 Year
  Sex: Male

DRUGS (3)
  1. FLUDARA [Suspect]
     Indication: B-CELL SMALL LYMPHOCYTIC LYMPHOMA STAGE II
     Dosage: SEE IMAGE
     Route: 042
     Dates: start: 19950601, end: 19951101
  2. FLUDARA [Suspect]
     Indication: B-CELL SMALL LYMPHOCYTIC LYMPHOMA STAGE II
     Dosage: SEE IMAGE
     Route: 042
     Dates: start: 19981001, end: 19990201
  3. FLUDARA [Suspect]
     Indication: B-CELL SMALL LYMPHOCYTIC LYMPHOMA STAGE II
     Dosage: SEE IMAGE
     Route: 042
     Dates: start: 19990401, end: 19990801

REACTIONS (10)
  - B-CELL SMALL LYMPHOCYTIC LYMPHOMA [None]
  - BASAL CELL CARCINOMA [None]
  - CHRONIC LYMPHOCYTIC LEUKAEMIA [None]
  - LYMPHOPENIA [None]
  - MALIGNANT PLEURAL EFFUSION [None]
  - METASTASES TO LUNG [None]
  - METASTASES TO LYMPH NODES [None]
  - METASTATIC SQUAMOUS CELL CARCINOMA [None]
  - RECURRENT CANCER [None]
  - SQUAMOUS CELL CARCINOMA OF SKIN [None]
